FAERS Safety Report 20749788 (Version 1)
Quarter: 2022Q2

REPORT INFORMATION
  Report Type: Spontaneous
  Country: US (occurrence: None)
  Receive Date: 20220425
  Receipt Date: 20220425
  Transmission Date: 20220721
  Serious: Yes (Disabling)
  Sender: FDA-Public Use
  Company Number: None

PATIENT
  Age: 61 Year
  Sex: Female
  Weight: 67.5 kg

DRUGS (10)
  1. FLUTICASONE PROPIONATE [Suspect]
     Active Substance: FLUTICASONE PROPIONATE
     Indication: Drug therapy
     Dosage: OTHER STRENGTH : MCG;?OTHER QUANTITY : 1 SPRAY(S);?FREQUENCY : DAILY;?OTHER ROUTE : NASAL SPRAY;?
     Route: 050
     Dates: start: 20220404, end: 20220414
  2. XANAX [Concomitant]
     Active Substance: ALPRAZOLAM
  3. VITAMIN D NOS [Concomitant]
     Active Substance: VITAMIN D NOS
  4. VIT C [Concomitant]
  5. VITAMIN B COMPLEX [Concomitant]
     Active Substance: CYANOCOBALAMIN\DEXPANTHENOL\NIACINAMIDE\PYRIDOXINE HYDROCHLORIDE\RIBOFLAVIN 5^-PHOSPHATE SODIUM\THIA
  6. CHONDROITIN SULFATE (BOVINE)\GLUCOSAMINE HYDROCHLORIDE [Concomitant]
     Active Substance: CHONDROITIN SULFATE (BOVINE)\GLUCOSAMINE HYDROCHLORIDE
  7. NAC [Concomitant]
  8. Zinc/Mullin Leaf [Concomitant]
  9. LOBELIA [Concomitant]
  10. B+T Daytime Cough and Bronchial Syrup [Concomitant]

REACTIONS (5)
  - Migraine with aura [None]
  - Coordination abnormal [None]
  - Balance disorder [None]
  - Depressed level of consciousness [None]
  - Memory impairment [None]

NARRATIVE: CASE EVENT DATE: 20220410
